FAERS Safety Report 21166138 (Version 1)
Quarter: 2022Q3

REPORT INFORMATION
  Report Type: Spontaneous
  Country: US (occurrence: None)
  Receive Date: 20220802
  Receipt Date: 20220802
  Transmission Date: 20221027
  Serious: Yes (Other)
  Sender: FDA-Public Use
  Company Number: None

PATIENT
  Sex: Female

DRUGS (1)
  1. EMGALITY [Suspect]
     Active Substance: GALCANEZUMAB-GNLM
     Indication: Migraine
     Dosage: OTHER QUANTITY : 1 INJECTION(S);?OTHER FREQUENCY : ONCE MONTHLY;?
     Route: 058
     Dates: start: 20220301

REACTIONS (5)
  - Device malfunction [None]
  - Urticaria [None]
  - Pruritus [None]
  - Nodule [None]
  - Feeling hot [None]

NARRATIVE: CASE EVENT DATE: 20220802
